FAERS Safety Report 13443210 (Version 1)
Quarter: 2017Q2

REPORT INFORMATION
  Report Type: Report from Study
  Country: KR (occurrence: KR)
  Receive Date: 20170414
  Receipt Date: 20170414
  Transmission Date: 20170830
  Serious: Yes (Other)
  Sender: FDA-Public Use
  Company Number: KR-SUN PHARMACEUTICAL INDUSTRIES LTD-2017R1-132690

PATIENT
  Age: 45 Year
  Sex: Female

DRUGS (4)
  1. CEFOXITIN [Concomitant]
     Active Substance: CEFOXITIN SODIUM
     Indication: LUNG DISORDER
     Route: 065
  2. AMIKACIN [Concomitant]
     Active Substance: AMIKACIN
     Indication: LUNG DISORDER
     Route: 042
  3. CLARITHROMYCIN. [Suspect]
     Active Substance: CLARITHROMYCIN
     Indication: LUNG DISORDER
     Route: 048
  4. IMEPENEM [Concomitant]
     Indication: LUNG DISORDER
     Dosage: UNK
     Route: 065

REACTIONS (1)
  - Pathogen resistance [Unknown]
